FAERS Safety Report 10944274 (Version 1)
Quarter: 2015Q1

REPORT INFORMATION
  Report Type: Spontaneous
  Country: US (occurrence: US)
  Receive Date: 20150323
  Receipt Date: 20150323
  Transmission Date: 20150721
  Serious: No
  Sender: FDA-Public Use
  Company Number: US-BIOGENIDEC-2015BI019337

PATIENT
  Age: 32 Year
  Sex: Female

DRUGS (2)
  1. TYSABRI [Concomitant]
     Active Substance: NATALIZUMAB
     Indication: EXPOSURE VIA FATHER
     Route: 042
     Dates: start: 20141016
  2. AVONEX [Suspect]
     Active Substance: INTERFERON BETA-1A
     Indication: EXPOSURE VIA FATHER
     Dates: start: 20130213, end: 20141013

REACTIONS (1)
  - Pregnancy [Not Recovered/Not Resolved]
